FAERS Safety Report 4861566-0 (Version None)
Quarter: 2005Q4

REPORT INFORMATION
  Report Type: 
  Country: None (occurrence: None)
  Receive Date: 20051220
  Receipt Date: 20051209
  Transmission Date: 20060501
  Serious: Yes (Other)
  Sender: FDA-Public Use
  Company Number: CA-BRISTOL-MYERS SQUIBB COMPANY-13220330

PATIENT
  Age: 61 Year
  Sex: Male

DRUGS (7)
  1. TEQUIN [Suspect]
     Route: 048
  2. HYDROCHLOROTHIAZIDE [Concomitant]
     Route: 048
  3. KEFLEX [Concomitant]
     Route: 048
  4. METOPROLOL [Concomitant]
     Route: 048
  5. NORVASC [Concomitant]
     Route: 048
  6. NOVORAPID [Concomitant]
  7. PERCOCET [Concomitant]
     Route: 048

REACTIONS (2)
  - CONVULSION [None]
  - HYPOGLYCAEMIA [None]
